FAERS Safety Report 4327932-7 (Version None)
Quarter: 2004Q1

REPORT INFORMATION
  Report Type: 
  Country: None (occurrence: None)
  Receive Date: 20040322
  Receipt Date: 20031219
  Transmission Date: 20041129
  Serious: Yes (Other)
  Sender: FDA-Public Use
  Company Number: PHEH2003US09409

PATIENT
  Age: 70 Year
  Sex: Female

DRUGS (1)
  1. ZOMETA [Suspect]
     Indication: MULTIPLE MYELOMA
     Dosage: 4 MG EVERY 4 WEEKS, INTRAVENOUS
     Route: 042
     Dates: start: 20011129, end: 20011227

REACTIONS (4)
  - BLOOD CREATININE INCREASED [None]
  - BLOOD UREA NITROGEN/CREATININE RATIO [None]
  - DIALYSIS [None]
  - RENAL FAILURE [None]
